FAERS Safety Report 9317596 (Version 1)
Quarter: 2013Q2

REPORT INFORMATION
  Report Type: Spontaneous
  Country: US (occurrence: US)
  Receive Date: 20130530
  Receipt Date: 20130530
  Transmission Date: 20140414
  Serious: No
  Sender: FDA-Public Use
  Company Number: US-NOVEN-12US004960

PATIENT
  Sex: Female
  Weight: 136.5 kg

DRUGS (3)
  1. DAYTRANA [Suspect]
     Indication: ATTENTION DEFICIT/HYPERACTIVITY DISORDER
     Dosage: 2 X 30 MG, UNK
     Route: 062
  2. ABILIFY [Concomitant]
     Dosage: 20 MG, UNK
     Route: 048
  3. LEXAPRO [Concomitant]
     Dosage: 20 MG, UNK
     Route: 048

REACTIONS (5)
  - Wrong technique in drug usage process [None]
  - Incorrect drug administration duration [Not Recovered/Not Resolved]
  - Drug administered at inappropriate site [Not Recovered/Not Resolved]
  - Product quality issue [Not Recovered/Not Resolved]
  - No adverse event [None]
